FAERS Safety Report 4852590-2 (Version None)
Quarter: 2005Q4

REPORT INFORMATION
  Report Type: 
  Country: None (occurrence: None)
  Receive Date: 20051125
  Receipt Date: 20050901
  Transmission Date: 20060501
  Serious: Yes (Other)
  Sender: FDA-Public Use
  Company Number: 2005098209

PATIENT
  Age: 64 Year
  Sex: Male
  Weight: 104.3273 kg

DRUGS (5)
  1. TIKOSYN [Suspect]
     Indication: ATRIAL FIBRILLATION
     Dosage: 1 MG (0.5 MG, BID INTERVAL: EVERY DAY), ORAL
     Route: 048
  2. TOPROL-XL [Concomitant]
  3. LIPITOR [Concomitant]
  4. COUMADIN [Concomitant]
  5. ADEFOVIR DIPIVOXIL (ADEFOVIR DIPIVOXIL) [Concomitant]

REACTIONS (1)
  - DRUG INEFFECTIVE [None]
